FAERS Safety Report 8902587 (Version 3)
Quarter: 2013Q1

REPORT INFORMATION
  Report Type: Spontaneous
  Country: RO (occurrence: RO)
  Receive Date: 20121112
  Receipt Date: 20130329
  Transmission Date: 20140127
  Serious: Yes (Life-Threatening, Hospitalization)
  Sender: FDA-Public Use
  Company Number: PHHY2012RO103320

PATIENT
  Age: 67 Year
  Sex: Male

DRUGS (3)
  1. SALBUTAMOL [Suspect]
     Indication: ASTHMA
     Dosage: 200 UG, UNK
     Dates: start: 201109
  2. FLUTICASONE W/SALMETEROL [Concomitant]
     Dates: start: 2003, end: 2011
  3. TIOTROPIUM [Concomitant]
     Dates: start: 201106

REACTIONS (11)
  - Depressed level of consciousness [Recovering/Resolving]
  - Anxiety [Recovering/Resolving]
  - Bronchospasm paradoxical [Recovering/Resolving]
  - Cough [Recovering/Resolving]
  - Wheezing [Recovering/Resolving]
  - Dyspnoea [Recovering/Resolving]
  - Tachypnoea [Recovering/Resolving]
  - Asterixis [Recovering/Resolving]
  - Hypertension [Recovering/Resolving]
  - Drug ineffective [Unknown]
  - Incorrect dose administered [Unknown]
